FAERS Safety Report 17583664 (Version 1)
Quarter: 2020Q1

REPORT INFORMATION
  Report Type: Spontaneous
  Country: AU (occurrence: AU)
  Receive Date: 20200326
  Receipt Date: 20200326
  Transmission Date: 20200409
  Serious: Yes (Other)
  Sender: FDA-Public Use
  Company Number: AU-009507513-2003AUS008424

PATIENT
  Age: 78 Year
  Sex: Male

DRUGS (1)
  1. KEYTRUDA [Suspect]
     Active Substance: PEMBROLIZUMAB
     Indication: NON-SMALL CELL LUNG CANCER
     Dosage: UNK UNK, CYCLICAL
     Dates: start: 201702

REACTIONS (3)
  - Enterobacter infection [Unknown]
  - Blood culture positive [Unknown]
  - Rectal abscess [Unknown]

NARRATIVE: CASE EVENT DATE: 2018
